FAERS Safety Report 15433451 (Version 2)
Quarter: 2018Q4

REPORT INFORMATION
  Report Type: Spontaneous
  Country: TT (occurrence: TT)
  Receive Date: 20180927
  Receipt Date: 20181009
  Transmission Date: 20190204
  Serious: Yes (Hospitalization)
  Sender: FDA-Public Use
  Company Number: TT-B.I. PHARMACEUTICALS,INC./RIDGEFIELD-2018-BI-046794

PATIENT
  Age: 92 Year
  Sex: Female

DRUGS (2)
  1. PRADAXA [Suspect]
     Active Substance: DABIGATRAN ETEXILATE MESYLATE
     Indication: PULMONARY EMBOLISM
  2. PRADAXA [Suspect]
     Active Substance: DABIGATRAN ETEXILATE MESYLATE
     Indication: DEEP VEIN THROMBOSIS
     Route: 048
     Dates: end: 201809

REACTIONS (7)
  - Peripheral swelling [Recovering/Resolving]
  - Thrombosis [Unknown]
  - Device occlusion [Recovered/Resolved]
  - Intestinal congestion [Recovering/Resolving]
  - Renal impairment [Unknown]
  - Haemorrhage [Recovering/Resolving]
  - Hepatic congestion [Recovering/Resolving]

NARRATIVE: CASE EVENT DATE: 2018
